FAERS Safety Report 19672639 (Version 5)
Quarter: 2021Q4

REPORT INFORMATION
  Report Type: Spontaneous
  Country: CA (occurrence: CA)
  Receive Date: 20210808
  Receipt Date: 20211201
  Transmission Date: 20220303
  Serious: Yes (Other)
  Sender: FDA-Public Use
  Company Number: CA-CELLTRION INC.-2021CA010081

PATIENT

DRUGS (8)
  1. INFLECTRA [Suspect]
     Active Substance: INFLIXIMAB-DYYB
     Indication: Colitis ulcerative
     Dosage: 500 MG, AT 0 (IN HOSPITAL), 2 AND 6 WEEKS THEN EVERY 8 WEEKS
     Route: 042
     Dates: start: 20210520
  2. INFLECTRA [Suspect]
     Active Substance: INFLIXIMAB-DYYB
     Dosage: 500 MG, AT 0 (IN HOSPITAL), 2 AND 6 WEEKS THEN EVERY 8 WEEKS
     Route: 042
     Dates: start: 20210610
  3. INFLECTRA [Suspect]
     Active Substance: INFLIXIMAB-DYYB
     Dosage: 500 MG, AT 0 (IN HOSPITAL), 2 AND 6 WEEKS THEN EVERY 8 WEEKS
     Route: 042
     Dates: start: 20210722
  4. INFLECTRA [Suspect]
     Active Substance: INFLIXIMAB-DYYB
     Dosage: 500 MG, AT 0 (IN HOSPITAL), 2 AND 6 WEEKS THEN EVERY 8 WEEKS
     Route: 042
     Dates: start: 20210914
  5. INFLECTRA [Suspect]
     Active Substance: INFLIXIMAB-DYYB
     Dosage: 600 MG, INDUCTION AT Q 0, 2 AND 6 WEEK THEN EVERY 8 WEEKS
     Route: 042
     Dates: start: 20211007
  6. PREDNISONE [Concomitant]
     Active Substance: PREDNISONE
     Dosage: UNK
  7. TYLENOL [Concomitant]
     Active Substance: ACETAMINOPHEN
     Indication: Premedication
     Dosage: UNK
     Route: 048
  8. BENADRYL [Concomitant]
     Active Substance: DIPHENHYDRAMINE HYDROCHLORIDE
     Indication: Premedication
     Dosage: UNK

REACTIONS (21)
  - Weight increased [Unknown]
  - Blood pressure abnormal [Unknown]
  - Diarrhoea haemorrhagic [Unknown]
  - Loss of consciousness [Unknown]
  - Hyperhidrosis [Unknown]
  - Nail bed infection [Unknown]
  - Condition aggravated [Unknown]
  - Drug level below therapeutic [Unknown]
  - Feeling hot [Unknown]
  - Dry skin [Unknown]
  - Lip dry [Unknown]
  - Erythema [Unknown]
  - Bowel movement irregularity [Unknown]
  - Pallor [Unknown]
  - Pulse abnormal [Unknown]
  - Hypopnoea [Unknown]
  - Vomiting [Unknown]
  - Heart rate increased [Unknown]
  - Inappropriate schedule of product administration [Unknown]
  - Off label use [Unknown]
  - Off label use [Unknown]

NARRATIVE: CASE EVENT DATE: 20210101
